FAERS Safety Report 8447937-4 (Version None)
Quarter: 2012Q2

REPORT INFORMATION
  Report Type: 
  Country: None (occurrence: None)
  Receive Date: 20120619
  Receipt Date: 20120614
  Transmission Date: 20120825
  Serious: Yes (Death, Hospitalization, Other)
  Sender: FDA-Public Use
  Company Number: PHHY2009JP29824

PATIENT
  Age: 31 Year
  Sex: Female
  Weight: 47 kg

DRUGS (10)
  1. REVATIO [Suspect]
     Indication: PULMONARY HYPERTENSION
     Dosage: 45MG/DAY
     Route: 048
     Dates: start: 20030512, end: 20090708
  2. IMATINIB MESYLATE [Suspect]
     Dosage: 200MG/DAY
     Route: 048
     Dates: start: 20081208, end: 20090708
  3. IMATINIB MESYLATE [Suspect]
     Indication: PULMONARY HYPERTENSION
     Dosage: 100 MG/DAY
     Route: 048
  4. POTASSIUM IODIDE [Concomitant]
     Indication: HYPERTHYROIDISM
     Dosage: 50 MG, UNK
     Route: 048
     Dates: start: 20040921, end: 20090708
  5. ALDACTONE [Concomitant]
     Indication: RIGHT VENTRICULAR FAILURE
     Dosage: 25 MG, UNK
     Route: 048
     Dates: start: 20040731, end: 20090708
  6. FLOLAN [Suspect]
     Indication: PULMONARY HYPERTENSION
     Dosage: UNK
     Route: 042
     Dates: start: 20030502, end: 20090710
  7. NEO-MERCAZOLE TAB [Concomitant]
     Indication: HYPERTHYROIDISM
     Dosage: 15 MG, UNK
     Route: 048
     Dates: start: 20040914, end: 20090708
  8. LASIX [Concomitant]
     Indication: RIGHT VENTRICULAR FAILURE
     Dosage: 20 MG, UNK
     Route: 048
     Dates: start: 20040731, end: 20090708
  9. LASIX [Concomitant]
     Dosage: 20 MG, UNK
     Route: 042
     Dates: start: 20090708
  10. TRACLEER [Suspect]
     Indication: PULMONARY HYPERTENSION
     Dosage: 250 MG, UNK
     Route: 048
     Dates: start: 20050929, end: 20090708

REACTIONS (19)
  - HAEMOPTYSIS [None]
  - CARDIAC ARREST [None]
  - CARDIOMEGALY [None]
  - VOMITING [None]
  - PULMONARY HAEMORRHAGE [None]
  - HEART RATE INCREASED [None]
  - URINE OUTPUT DECREASED [None]
  - DYSPNOEA [None]
  - RIGHT VENTRICULAR FAILURE [None]
  - PULMONARY HYPERTENSION [None]
  - BLOOD PRESSURE DECREASED [None]
  - RESPIRATORY ARREST [None]
  - ENDOMETRIAL ATROPHY [None]
  - SOMNOLENCE [None]
  - RESTLESSNESS [None]
  - NAUSEA [None]
  - HEPATIC CONGESTION [None]
  - HYPERTHYROIDISM [None]
  - RENAL DISORDER [None]
